FAERS Safety Report 25576027 (Version 2)
Quarter: 2025Q3

REPORT INFORMATION
  Report Type: Spontaneous
  Country: US (occurrence: US)
  Receive Date: 20250718
  Receipt Date: 20250721
  Transmission Date: 20251020
  Serious: No
  Sender: SANOFI AVENTIS
  Company Number: US-SA-2025SA203530

PATIENT
  Age: 21 Year
  Sex: Female

DRUGS (1)
  1. DUPIXENT [Suspect]
     Active Substance: DUPILUMAB
     Dosage: 300 MG, QOW
     Route: 058

REACTIONS (6)
  - Hyperhidrosis [Unknown]
  - Eczema [Unknown]
  - Pruritus [Recovering/Resolving]
  - Rash [Unknown]
  - Injection site pain [Recovering/Resolving]
  - Inappropriate schedule of product administration [Unknown]
